FAERS Safety Report 9201257 (Version 1)
Quarter: 2013Q2

REPORT INFORMATION
  Report Type: Spontaneous
  Country: GB (occurrence: GB)
  Receive Date: 20130401
  Receipt Date: 20130401
  Transmission Date: 20140414
  Serious: Yes (Death)
  Sender: FDA-Public Use
  Company Number: PHFR2013GB001960

PATIENT
  Sex: Male

DRUGS (2)
  1. ZOMETA [Suspect]
     Route: 065
  2. ZYTIGA [Suspect]
     Indication: PROSTATE CANCER
     Route: 048

REACTIONS (3)
  - Blood creatinine abnormal [Fatal]
  - Disease progression [Fatal]
  - Blood calcium abnormal [Fatal]
